FAERS Safety Report 4796795-8 (Version None)
Quarter: 2005Q3

REPORT INFORMATION
  Report Type: 
  Country: None (occurrence: None)
  Receive Date: 20050916
  Receipt Date: 20050324
  Transmission Date: 20060218
  Serious: Yes (Other)
  Sender: FDA-Public Use
  Company Number: US-JNJFOC-20050306569

PATIENT
  Sex: Female

DRUGS (5)
  1. TOPAMAX [Suspect]
     Indication: BIPOLAR I DISORDER
     Dosage: 200 MG, 2 IN 1 DAY, ORAL
     Route: 048
  2. LAMICTAL [Concomitant]
  3. WELLBUTRIN [Concomitant]
  4. PROPRANOLOL [Concomitant]
  5. PREVACID [Concomitant]

REACTIONS (3)
  - FATIGUE [None]
  - METABOLIC ACIDOSIS [None]
  - THERAPEUTIC RESPONSE UNEXPECTED [None]
